FAERS Safety Report 18392868 (Version 1)
Quarter: 2020Q4

REPORT INFORMATION
  Report Type: Spontaneous
  Country: DE (occurrence: DE)
  Receive Date: 20201016
  Receipt Date: 20201016
  Transmission Date: 20210114
  Serious: Yes (Hospitalization, Other)
  Sender: FDA-Public Use
  Company Number: DE-MYLANLABS-2020M1078128

PATIENT
  Age: 21 Year
  Sex: Female

DRUGS (2)
  1. AMISULPRID [Concomitant]
     Active Substance: AMISULPRIDE
     Indication: SCHIZOPHRENIA
     Dosage: 300 MILLIGRAM, 0-0-X
     Route: 048
     Dates: start: 201909
  2. LEPONEX [Suspect]
     Active Substance: CLOZAPINE
     Indication: SCHIZOPHRENIA
     Dosage: 75 MILLIGRAM, TID
     Route: 048
     Dates: start: 201909, end: 20200904

REACTIONS (7)
  - Peritonitis [Unknown]
  - Tachycardia [Unknown]
  - Appendicitis [Unknown]
  - Transaminases increased [Recovering/Resolving]
  - White blood cell count decreased [Recovered/Resolved]
  - Nausea [Recovering/Resolving]
  - Hepatitis [Unknown]

NARRATIVE: CASE EVENT DATE: 201909
